FAERS Safety Report 9148561 (Version 1)
Quarter: 2013Q1

REPORT INFORMATION
  Report Type: Spontaneous
  Country: US (occurrence: None)
  Receive Date: 20130228
  Receipt Date: 20130228
  Transmission Date: 20140127
  Serious: Yes (Other)
  Sender: FDA-Public Use
  Company Number: None

PATIENT
  Age: 8 Year
  Sex: Male

DRUGS (1)
  1. ETOPOSIDE [Suspect]
     Indication: BENIGN NEOPLASM OF PINEAL GLAND
     Dates: start: 20130117, end: 20130117

REACTIONS (4)
  - Tachycardia [None]
  - Flushing [None]
  - Swelling [None]
  - Oxygen saturation decreased [None]
